FAERS Safety Report 15151739 (Version 1)
Quarter: 2018Q3

REPORT INFORMATION
  Report Type: Spontaneous
  Country: FR (occurrence: FR)
  Receive Date: 20180716
  Receipt Date: 20180716
  Transmission Date: 20181010
  Serious: Yes (Hospitalization)
  Sender: FDA-Public Use
  Company Number: FR-TEVA-2018-FR-927200

PATIENT
  Age: 79 Year
  Sex: Female

DRUGS (5)
  1. EUPRESSYL [Suspect]
     Active Substance: URAPIDIL
     Indication: HYPERTENSION
     Dosage: 120 MILLIGRAM DAILY;
     Route: 048
  2. LOXEN L P 50 MG, G?LULE ? LIB?RATION PROLONG?E [Suspect]
     Active Substance: NICARDIPINE HYDROCHLORIDE
     Indication: HYPERTENSION
     Dosage: 2 DOSAGE FORMS DAILY;
     Route: 048
     Dates: end: 20180606
  3. CHLORHYDRATE D^ACEBUTOLOL [Suspect]
     Active Substance: ACEBUTOLOL HYDROCHLORIDE
     Indication: HYPERTENSION
     Dosage: 400 MILLIGRAM DAILY;
     Route: 048
  4. ESIDREX [Suspect]
     Active Substance: HYDROCHLOROTHIAZIDE
     Indication: HYPERTENSION
     Dosage: 25 MILLIGRAM DAILY;
     Route: 048
  5. CANDESARTAN CILEXETIL. [Suspect]
     Active Substance: CANDESARTAN CILEXETIL
     Indication: HYPERTENSION
     Dosage: 4 MILLIGRAM DAILY;
     Route: 048
     Dates: end: 20180606

REACTIONS (3)
  - Acute kidney injury [Recovering/Resolving]
  - Hypertension [Recovered/Resolved]
  - Orthostatic hypotension [Recovered/Resolved]

NARRATIVE: CASE EVENT DATE: 20180605
